FAERS Safety Report 17599725 (Version 1)
Quarter: 2020Q1

REPORT INFORMATION
  Report Type: Spontaneous
  Country: GB (occurrence: GB)
  Receive Date: 20200330
  Receipt Date: 20200330
  Transmission Date: 20200409
  Serious: Yes (Hospitalization, Other)
  Sender: FDA-Public Use
  Company Number: GB-ASTRAZENECA-2020SE43723

PATIENT
  Age: 16 Month
  Sex: Female
  Weight: 5.9 kg

DRUGS (1)
  1. PALIVIZUMAB [Suspect]
     Active Substance: PALIVIZUMAB
     Indication: IMMUNISATION
     Dosage: 15.0MG/KG UNKNOWN
     Route: 030

REACTIONS (2)
  - Injection site abscess [Not Recovered/Not Resolved]
  - Septic shock [Unknown]
